FAERS Safety Report 8618402 (Version 3)
Quarter: 2020Q1

REPORT INFORMATION
  Report Type: Spontaneous
  Country: NL (occurrence: NL)
  Receive Date: 20120617
  Receipt Date: 20200207
  Transmission Date: 20200409
  Serious: Yes (Life-Threatening, Other)
  Sender: FDA-Public Use
  Company Number: NL-AMGEN-NLDSP2012035728

PATIENT
  Age: 50 Year
  Sex: Female
  Weight: 75 kg

DRUGS (4)
  1. ENBREL [Suspect]
     Active Substance: ETANERCEPT
     Indication: RHEUMATOID ARTHRITIS
     Dosage: 25 MILLIGRAM, QWK
     Route: 058
     Dates: start: 20120426, end: 20120514
  2. OMEPRAZOL [Concomitant]
     Active Substance: OMEPRAZOLE
     Dosage: 20 MILLIGRAM, QD
     Route: 048
     Dates: start: 2007
  3. DICLOFENAC [Concomitant]
     Active Substance: DICLOFENAC
     Dosage: 50 MILLIGRAM, TID
     Route: 048
     Dates: start: 2007
  4. ASASANTIN [Concomitant]
     Active Substance: ASPIRIN\DIPYRIDAMOLE
     Dosage: 1 DOSAGE FORM, BID
     Route: 048
     Dates: start: 20111119

REACTIONS (11)
  - Dizziness [Not Recovered/Not Resolved]
  - Face oedema [Not Recovered/Not Resolved]
  - Rash [Not Recovered/Not Resolved]
  - Feeling hot [Not Recovered/Not Resolved]
  - Myalgia [Not Recovered/Not Resolved]
  - Off label use [Unknown]
  - Cerebrovascular accident [Not Recovered/Not Resolved]
  - Vision blurred [Not Recovered/Not Resolved]
  - Oedema peripheral [Not Recovered/Not Resolved]
  - Abdominal distension [Not Recovered/Not Resolved]
  - Limb discomfort [Not Recovered/Not Resolved]

NARRATIVE: CASE EVENT DATE: 20120426
